FAERS Safety Report 24644884 (Version 2)
Quarter: 2025Q1

REPORT INFORMATION
  Report Type: Spontaneous
  Country: US (occurrence: US)
  Receive Date: 20241121
  Receipt Date: 20250117
  Transmission Date: 20250408
  Serious: Yes (Other)
  Sender: JAZZ
  Company Number: US-JAZZ PHARMACEUTICALS-2024-US-021509

PATIENT
  Age: 41 Year
  Sex: Female

DRUGS (1)
  1. XYREM [Suspect]
     Active Substance: SODIUM OXYBATE
     Indication: Product used for unknown indication
     Dosage: 4.5 GRAM, BID

REACTIONS (2)
  - Depressed level of consciousness [Recovered/Resolved]
  - Extra dose administered [Recovered/Resolved]
